FAERS Safety Report 5034552-8 (Version None)
Quarter: 2006Q2

REPORT INFORMATION
  Report Type: 
  Country: None (occurrence: None)
  Receive Date: 20060621
  Receipt Date: 20060607
  Transmission Date: 20061013
  Serious: No
  Sender: FDA-Public Use
  Company Number: 06H-163-0308447-00

PATIENT
  Age: 55 Year
  Sex: Female

DRUGS (5)
  1. A-METHOPRED INJECTION (METHYLPREDNISOLONE SODIUM SUCCINATE) (METHYLPRE [Suspect]
     Indication: ANTIINFLAMMATORY THERAPY
     Dosage: 80 MG/ML, UNKNOWN, SUBACROMIAL INJECTION
  2. ISOTRETINOIN [Suspect]
     Indication: ACNE
     Dosage: 1MG/KG, D,
  3. BETADINE [Concomitant]
  4. ALCOHOL (ETHANOL) [Concomitant]
  5. 1+ LIDOCAINE (LIDOCAINE) [Concomitant]

REACTIONS (1)
  - BURSITIS INFECTIVE STAPHYLOCOCCAL [None]
